FAERS Safety Report 12991548 (Version 4)
Quarter: 2024Q3

REPORT INFORMATION
  Report Type: Spontaneous
  Country: JP (occurrence: JP)
  Receive Date: 20161201
  Receipt Date: 20240827
  Transmission Date: 20241016
  Serious: Yes (Hospitalization, Other)
  Sender: SANOFI AVENTIS
  Company Number: JP-SA-2016SA216682

PATIENT
  Age: 74 Year
  Sex: Male

DRUGS (3)
  1. TAXOTERE [Suspect]
     Active Substance: DOCETAXEL
     Indication: Oropharyngeal cancer
     Dosage: QCY
     Dates: start: 201606
  2. CISPLATIN [Suspect]
     Active Substance: CISPLATIN
     Indication: Oropharyngeal cancer
     Dosage: QCY
     Dates: start: 201606
  3. FLUOROURACIL [Suspect]
     Active Substance: FLUOROURACIL
     Indication: Oropharyngeal cancer
     Dosage: QCY
     Dates: start: 201606

REACTIONS (7)
  - Intestinal ischaemia [Recovered/Resolved]
  - Abdominal pain [Recovered/Resolved]
  - Gastrointestinal necrosis [Recovered/Resolved]
  - Septic shock [Recovered/Resolved]
  - Myelosuppression [Unknown]
  - Febrile neutropenia [Unknown]
  - Pyrexia [Unknown]

NARRATIVE: CASE EVENT DATE: 20160101
